FAERS Safety Report 14265679 (Version 1)
Quarter: 2017Q4

REPORT INFORMATION
  Report Type: Spontaneous
  Country: GR (occurrence: GR)
  Receive Date: 20171208
  Receipt Date: 20171208
  Transmission Date: 20180321
  Serious: Yes (Hospitalization)
  Sender: FDA-Public Use
  Company Number: GR-BAUSCH-BL-2017-032823

PATIENT
  Age: 13 Year
  Sex: Female

DRUGS (1)
  1. DESMOPRESSIN [Suspect]
     Active Substance: DESMOPRESSIN
     Indication: HAEMORRHAGE
     Dosage: 2 DOSES OF 300NG/KG
     Route: 042

REACTIONS (2)
  - Delayed graft function [Unknown]
  - Renal tubular necrosis [Unknown]
